FAERS Safety Report 21179920 (Version 1)
Quarter: 2022Q3

REPORT INFORMATION
  Report Type: Spontaneous
  Country: US (occurrence: None)
  Receive Date: 20220805
  Receipt Date: 20220805
  Transmission Date: 20221027
  Serious: Yes (Death)
  Sender: FDA-Public Use
  Company Number: None

PATIENT
  Age: 46 Year
  Sex: Male
  Weight: 111.15 kg

DRUGS (3)
  1. MAGNESIUM CITRATE LEMON [Suspect]
     Active Substance: MAGNESIUM CITRATE
  2. UNSPECIFIED INGREDIENT [Concomitant]
     Active Substance: UNSPECIFIED INGREDIENT
  3. UNSPECIFIED INGREDIENT [Concomitant]
     Active Substance: UNSPECIFIED INGREDIENT

REACTIONS (7)
  - Abdominal distension [None]
  - Abdominal pain upper [None]
  - Pancreatitis [None]
  - Cholelithiasis [None]
  - Multiple organ dysfunction syndrome [None]
  - Obstructive pancreatitis [None]
  - Recalled product administered [None]

NARRATIVE: CASE EVENT DATE: 20220414
